FAERS Safety Report 25309123 (Version 5)
Quarter: 2025Q3

REPORT INFORMATION
  Report Type: Report from Study
  Country: US (occurrence: US)
  Receive Date: 20250513
  Receipt Date: 20250717
  Transmission Date: 20251021
  Serious: Yes (Other)
  Sender: MALLINCKRODT
  Company Number: US-MALLINCKRODT-MNK202502706

PATIENT
  Age: 68 Year
  Sex: Female

DRUGS (8)
  1. CORTICOTROPIN [Suspect]
     Active Substance: CORTICOTROPIN
     Indication: Pemphigoid
     Dosage: 80 UNITS
     Dates: start: 20240613
  2. CORTICOTROPIN [Suspect]
     Active Substance: CORTICOTROPIN
     Indication: Corneal disorder
     Dosage: 80 UNITS
     Route: 058
     Dates: start: 202502
  3. RITUXAN [Suspect]
     Active Substance: RITUXIMAB
     Indication: Product used for unknown indication
  4. SUCRALFATE [Concomitant]
     Active Substance: SUCRALFATE
     Dosage: UNKNOWN
     Route: 048
  5. IRON [Concomitant]
     Active Substance: IRON
     Dates: start: 20250428
  6. ACRIVASTINE [Concomitant]
     Active Substance: ACRIVASTINE
  7. MYCOPHENOLIC ACID [Concomitant]
     Active Substance: MYCOPHENOLIC ACID
  8. AMLODIPINE [Concomitant]
     Active Substance: AMLODIPINE BESYLATE

REACTIONS (13)
  - Choking [Recovering/Resolving]
  - Blood pressure increased [Recovering/Resolving]
  - Dysphagia [Not Recovered/Not Resolved]
  - Eye pain [Recovering/Resolving]
  - Ocular hyperaemia [Recovering/Resolving]
  - Lacrimation increased [Recovering/Resolving]
  - Dyspnoea [Recovering/Resolving]
  - Oral mucosal blistering [Recovering/Resolving]
  - Stress [Recovering/Resolving]
  - Growth of eyelashes [Recovering/Resolving]
  - Intraocular pressure increased [Recovering/Resolving]
  - Swelling [Recovering/Resolving]
  - Hyperhidrosis [Recovering/Resolving]

NARRATIVE: CASE EVENT DATE: 20250101
